FAERS Safety Report 14838592 (Version 1)
Quarter: 2018Q2

REPORT INFORMATION
  Report Type: Spontaneous
  Country: FR (occurrence: FR)
  Receive Date: 20180502
  Receipt Date: 20180502
  Transmission Date: 20180711
  Serious: Yes (Hospitalization)
  Sender: FDA-Public Use
  Company Number: FR-MYLANLABS-2018M1027509

PATIENT
  Age: 22 Year
  Sex: Male
  Weight: 60 kg

DRUGS (3)
  1. ETOPOSIDE MYLAN 20 MG/ML, SOLUTION ? DILUER POUR PERFUSION [Suspect]
     Active Substance: ETOPOSIDE
     Indication: OSTEOSARCOMA
     Dosage: 175 MG, TOTAL
     Route: 042
     Dates: start: 20171206, end: 20171208
  2. HOLOXAN [Suspect]
     Active Substance: IFOSFAMIDE
     Indication: OSTEOSARCOMA
     Dosage: 5240 MG, TOTAL
     Route: 042
     Dates: start: 20171206, end: 20171208
  3. HOLOXAN [Suspect]
     Active Substance: IFOSFAMIDE
     Dosage: 175 MG, TOTAL
     Route: 042
     Dates: start: 20171206, end: 20171208

REACTIONS (5)
  - Ejection fraction decreased [Not Recovered/Not Resolved]
  - Rash maculo-papular [Recovering/Resolving]
  - Bone marrow failure [Recovering/Resolving]
  - Renal tubular disorder [Recovered/Resolved]
  - Hepatocellular injury [Recovering/Resolving]

NARRATIVE: CASE EVENT DATE: 20171210
